FAERS Safety Report 10360101 (Version 1)
Quarter: 2014Q3

REPORT INFORMATION
  Report Type: Spontaneous
  Country: US (occurrence: None)
  Receive Date: 20140731
  Receipt Date: 20140731
  Transmission Date: 20150326
  Serious: No
  Sender: FDA-Public Use
  Company Number: None

PATIENT
  Age: 66 Year
  Sex: Male
  Weight: 72.58 kg

DRUGS (2)
  1. MIRVASO [Suspect]
     Active Substance: BRIMONIDINE TARTRATE
     Indication: ROSACEA
     Dosage: MIRVASO CREAM  EACH MORNING TOPICAL FACE
     Route: 061
     Dates: start: 20140504, end: 20140520
  2. MIRVASO [Suspect]
     Active Substance: BRIMONIDINE TARTRATE
     Indication: FLUSHING
     Dosage: MIRVASO CREAM  EACH MORNING TOPICAL FACE
     Route: 061
     Dates: start: 20140504, end: 20140520

REACTIONS (1)
  - Epistaxis [None]

NARRATIVE: CASE EVENT DATE: 20140509
